FAERS Safety Report 7437768-6 (Version None)
Quarter: 2011Q2

REPORT INFORMATION
  Report Type: 
  Country: None (occurrence: None)
  Receive Date: 20110426
  Receipt Date: 20110419
  Transmission Date: 20111010
  Serious: Yes (Hospitalization)
  Sender: FDA-Public Use
  Company Number: BR-ABBOTT-11P-020-0720991-00

PATIENT
  Sex: Female
  Weight: 66 kg

DRUGS (8)
  1. HUMIRA [Suspect]
     Dates: start: 20110417
  2. OXCARBAZEPINE 300MG+ PHENYTOIN 80MG [Concomitant]
     Indication: EPILEPSY
     Route: 048
  3. NORTRIPTYLINE 18MG+MELOXICAM 5MG+PARACETAMOL 300MG+FAMOTIDINE 40MG [Concomitant]
     Indication: ANKYLOSING SPONDYLITIS
     Route: 048
     Dates: start: 20110101
  4. HUMIRA [Suspect]
     Indication: ANKYLOSING SPONDYLITIS
     Dates: start: 20101013, end: 20110319
  5. TRAMAL [Concomitant]
     Indication: PAIN
     Dates: start: 20110301, end: 20110301
  6. PHENYTOIN 80MG + ATENOLOL 20MG [Concomitant]
     Indication: EPILEPSY
     Route: 048
  7. NORTRIPTYLINE 18MG+MELOXICAM 5MG+PARACETAMOL 300MG+FAMOTIDINE 40MG [Concomitant]
     Indication: FIBROMYALGIA
  8. INDOMETHACIN 25MG+TENOXICAM 5MG+CODEIN 10MG+ FAMOTIDINE 40MG [Concomitant]
     Indication: PAIN
     Route: 048

REACTIONS (8)
  - FATIGUE [None]
  - COUGH [None]
  - PAIN [None]
  - INJECTION SITE PAIN [None]
  - DYSPNOEA [None]
  - FIBROMYALGIA [None]
  - INJECTION SITE SWELLING [None]
  - INJECTION SITE ERYTHEMA [None]
